FAERS Safety Report 6277441-3 (Version None)
Quarter: 2009Q3

REPORT INFORMATION
  Report Type: 
  Country: None (occurrence: None)
  Receive Date: 20090722
  Receipt Date: 20090114
  Transmission Date: 20100115
  Serious: No
  Sender: FDA-Public Use
  Company Number: US-BRISTOL-MYERS SQUIBB COMPANY-14471361

PATIENT
  Age: 56 Year
  Sex: Male
  Weight: 113 kg

DRUGS (8)
  1. COUMADIN [Suspect]
     Indication: CORONARY ARTERY OCCLUSION
     Dosage: 5MG, 1.5 TABLETS 2 DAYS PER WEEK AND 5MG ON REMAINING DAYS THEN INCREASED TO 5MG, 1.5 TABLETS DAILY
     Dates: start: 20081219
  2. SOTALOL HYDROCHLORIDE [Suspect]
  3. METOPROLOL TARTRATE [Suspect]
  4. PROTONIX [Concomitant]
  5. ASPIRIN [Concomitant]
  6. CENTRUM [Concomitant]
  7. VITAMIN B-12 [Concomitant]
  8. MULTI-VITAMIN [Concomitant]

REACTIONS (2)
  - DIZZINESS [None]
  - INTERNATIONAL NORMALISED RATIO DECREASED [None]
